FAERS Safety Report 7224809-4 (Version None)
Quarter: 2011Q1

REPORT INFORMATION
  Report Type: 
  Country: None (occurrence: None)
  Receive Date: 20110113
  Receipt Date: 20110104
  Transmission Date: 20110831
  Serious: Yes (Hospitalization)
  Sender: FDA-Public Use
  Company Number: CA-MEDIMMUNE-MEDI-0012171

PATIENT
  Sex: Female
  Weight: 10.4 kg

DRUGS (4)
  1. SYNAGIS [Suspect]
     Indication: HEART DISEASE CONGENITAL
     Dates: start: 20101115, end: 20101115
  2. BACTRIM [Concomitant]
     Route: 048
  3. PROPRANOLOL HYDROCHLORIDE [Concomitant]
     Route: 048
  4. LANSOPRAZOLE [Concomitant]
     Route: 048

REACTIONS (3)
  - H1N1 INFLUENZA [None]
  - MORAXELLA INFECTION [None]
  - BACTERIAL TRACHEITIS [None]
